FAERS Safety Report 10309016 (Version 2)
Quarter: 2015Q1

REPORT INFORMATION
  Report Type: Report from Study
  Country: US (occurrence: US)
  Receive Date: 20140716
  Receipt Date: 20150323
  Transmission Date: 20150720
  Serious: Yes (Other)
  Sender: FDA-Public Use
  Company Number: US-BAYER-2014-103322

PATIENT
  Age: 54 Year
  Sex: Female

DRUGS (6)
  1. NALTREXONE [Concomitant]
     Active Substance: NALTREXONE
     Dosage: 50 MG, QD
     Route: 048
  2. BETASERON [Suspect]
     Active Substance: INTERFERON BETA-1B
     Indication: RELAPSING-REMITTING MULTIPLE SCLEROSIS
     Dosage: 4 MIU, QOD
     Route: 058
     Dates: start: 20140617
  3. IMITREX [Suspect]
     Active Substance: SUMATRIPTAN\SUMATRIPTAN SUCCINATE
     Dosage: UNK
  4. METAMUCIL [Concomitant]
     Active Substance: PLANTAGO SEED
     Dosage: UNK UNK, QD
     Route: 048
  5. FAMOTIDINE. [Concomitant]
     Active Substance: FAMOTIDINE
     Dosage: 20 MG, TID
     Route: 048
  6. TYLENOL [Concomitant]
     Active Substance: ACETAMINOPHEN
     Indication: PREMEDICATION
     Dosage: 500 MG, QOD

REACTIONS (2)
  - Haematochezia [Recovered/Resolved]
  - Bladder cancer [None]

NARRATIVE: CASE EVENT DATE: 20140708
